FAERS Safety Report 8187864-3 (Version None)
Quarter: 2012Q1

REPORT INFORMATION
  Report Type: 
  Country: None (occurrence: None)
  Receive Date: 20120306
  Receipt Date: 20090421
  Transmission Date: 20120608
  Serious: Yes (Hospitalization)
  Sender: FDA-Public Use
  Company Number: US-GLAXOSMITHKLINE-A0779944A

PATIENT
  Age: 49 Year
  Sex: Female

DRUGS (3)
  1. WELLBUTRIN SR [Suspect]
     Dosage: 150MG TWICE PER DAY
     Route: 065
     Dates: start: 20090505
  2. LAMICTAL [Suspect]
     Dosage: 150MG TWICE PER DAY
     Route: 065
     Dates: start: 20090505
  3. LAMICTAL [Suspect]
     Indication: BIPOLAR DISORDER
     Dosage: 200MG UNKNOWN
     Route: 048

REACTIONS (8)
  - NEOPLASM MALIGNANT [None]
  - DISTURBANCE IN ATTENTION [None]
  - ROAD TRAFFIC ACCIDENT [None]
  - DIZZINESS [None]
  - EMOTIONAL DISTRESS [None]
  - AGITATION [None]
  - AMNESIA [None]
  - MALAISE [None]
